FAERS Safety Report 4483527-6 (Version None)
Quarter: 2004Q4

REPORT INFORMATION
  Report Type: 
  Country: None (occurrence: None)
  Receive Date: 20041020
  Receipt Date: 20041020
  Transmission Date: 20050328
  Serious: Yes (Hospitalization)
  Sender: FDA-Public Use
  Company Number: None

PATIENT
  Sex: Female
  Weight: 72.1219 kg

DRUGS (2)
  1. OXALIPLATIN 50 MG SANOFI [Suspect]
     Indication: COLON CANCER
     Dosage: 230 MG Q2 WEEKS IV
     Route: 042
     Dates: start: 20041006, end: 20041008
  2. OXALIPLATIN 50 MG SANOFI [Suspect]
     Indication: COLON CANCER
     Dosage: 230 MG Q2 WEEKS IV
     Route: 042
     Dates: start: 20041028, end: 20041018

REACTIONS (2)
  - ANAPHYLACTIC REACTION [None]
  - BRONCHOSPASM [None]
